FAERS Safety Report 8781179 (Version 2)
Quarter: 2012Q4

REPORT INFORMATION
  Report Type: 
  Country: US (occurrence: US)
  Receive Date: 20120913
  Receipt Date: 20121214
  Transmission Date: 20130627
  Serious: No
  Sender: FDA-Public Use
  Company Number: US-VERTEX PHARMACEUTICAL INC.-AE-2012-007262

PATIENT
  Age: 57 Year
  Sex: Male

DRUGS (4)
  1. VX-950 (TELAPREVIR) [Suspect]
     Indication: HEPATITIS C
     Dosage: UNK
     Route: 048
     Dates: start: 20120503, end: 20120726
  2. PEGASYS [Concomitant]
     Indication: HEPATITIS C
     Dosage: UNK
     Dates: start: 20120503, end: 20121010
  3. RIBAVIRIN [Concomitant]
     Indication: HEPATITIS C
     Dosage: UNK
     Dates: start: 20120503
  4. RIBAVIRIN [Concomitant]
     Dosage: dose decreased
     Dates: end: 20121017

REACTIONS (11)
  - Dizziness [Not Recovered/Not Resolved]
  - Tremor [Not Recovered/Not Resolved]
  - Influenza like illness [Recovered/Resolved]
  - Viral infection [Recovered/Resolved]
  - Chills [Not Recovered/Not Resolved]
  - Pain [Recovered/Resolved]
  - Fatigue [Recovered/Resolved]
  - Nausea [Not Recovered/Not Resolved]
  - Rash [Recovered/Resolved]
  - Pruritus [Recovered/Resolved]
  - Haemoglobin decreased [Unknown]
